FAERS Safety Report 22838245 (Version 2)
Quarter: 2024Q1

REPORT INFORMATION
  Report Type: Report from Study
  Country: US (occurrence: US)
  Receive Date: 20230818
  Receipt Date: 20240306
  Transmission Date: 20240409
  Serious: Yes (Other)
  Sender: FDA-Public Use
  Company Number: US-ARGENX-2022-ARGX-US001786

PATIENT

DRUGS (1)
  1. VYVGART [Suspect]
     Active Substance: EFGARTIGIMOD ALFA-FCAB
     Indication: Myasthenia gravis
     Dosage: UNK
     Route: 042

REACTIONS (10)
  - Arthrodesis [Recovering/Resolving]
  - Myasthenia gravis [Recovering/Resolving]
  - Feeling hot [Unknown]
  - Malaise [Unknown]
  - COVID-19 [Recovering/Resolving]
  - Pain [Recovering/Resolving]
  - Nephrolithiasis [Recovering/Resolving]
  - Colitis [Recovering/Resolving]
  - Myasthenia gravis [Unknown]
  - Nasopharyngitis [Unknown]
